FAERS Safety Report 7776396-X (Version None)
Quarter: 2011Q3

REPORT INFORMATION
  Report Type: 
  Country: None (occurrence: None)
  Receive Date: 20110926
  Receipt Date: 20110920
  Transmission Date: 20111222
  Serious: Yes (Other)
  Sender: FDA-Public Use
  Company Number: US-PFIZER INC-2011161063

PATIENT
  Sex: Male
  Weight: 74.83 kg

DRUGS (3)
  1. TOVIAZ [Suspect]
     Indication: HYPERTONIC BLADDER
     Dosage: 8 MG, 1X/DAY
     Route: 048
     Dates: start: 20110627, end: 20110629
  2. DARIFENACIN [Suspect]
     Dosage: 15 MG, UNK
  3. OXYBUTYNIN [Suspect]

REACTIONS (4)
  - EYE DISORDER [None]
  - BLINDNESS [None]
  - GLAUCOMA [None]
  - RETINAL INJURY [None]
